FAERS Safety Report 5903392-7 (Version None)
Quarter: 2008Q3

REPORT INFORMATION
  Report Type: 
  Country: None (occurrence: None)
  Receive Date: 20080930
  Receipt Date: 20080926
  Transmission Date: 20090109
  Serious: Yes (Disabling, Other)
  Sender: FDA-Public Use
  Company Number: US-MERCK-0808USA00133

PATIENT
  Age: 95 Year
  Sex: Female

DRUGS (2)
  1. COSOPT [Suspect]
     Indication: GLAUCOMA
     Route: 047
     Dates: start: 19990706
  2. [THERAPY UNSPECIFIED] [Suspect]
     Indication: GLAUCOMA
     Route: 047
     Dates: start: 19990101

REACTIONS (2)
  - EYE DISORDER [None]
  - PEMPHIGOID [None]
